FAERS Safety Report 23177527 (Version 5)
Quarter: 2024Q1

REPORT INFORMATION
  Report Type: Report from Study
  Country: CA (occurrence: CA)
  Receive Date: 20231113
  Receipt Date: 20240131
  Transmission Date: 20240409
  Serious: Yes (Hospitalization, Other)
  Sender: FDA-Public Use
  Company Number: CA-SANDOZ-NVSC2023CA061475

PATIENT
  Age: 75 Year
  Sex: Male
  Weight: 128 kg

DRUGS (2)
  1. PIRFENIDONE [Suspect]
     Active Substance: PIRFENIDONE
     Indication: Pulmonary fibrosis
     Dosage: 2403 MG, TID
     Route: 048
     Dates: start: 20230311
  2. PIRFENIDONE [Suspect]
     Active Substance: PIRFENIDONE
     Indication: Idiopathic pulmonary fibrosis
     Dosage: UNK
     Route: 048

REACTIONS (24)
  - Dyspnoea [Unknown]
  - Asthma [Unknown]
  - Condition aggravated [Unknown]
  - Arteriosclerosis coronary artery [Unknown]
  - Bronchiectasis [Unknown]
  - Interstitial lung disease [Unknown]
  - Productive cough [Unknown]
  - Wheezing [Unknown]
  - Sleep disorder [Unknown]
  - Somnolence [Unknown]
  - Wrong technique in product usage process [Unknown]
  - Forced vital capacity decreased [Unknown]
  - Gait disturbance [Unknown]
  - Lung diffusion test decreased [Unknown]
  - Investigation abnormal [Unknown]
  - Lung diffusion test abnormal [Unknown]
  - Lung diffusion disorder [Unknown]
  - Obstructive airways disorder [Unknown]
  - Bronchoscopic lung volume reduction [Unknown]
  - Restrictive pulmonary disease [Unknown]
  - Pulmonary septal thickening [Unknown]
  - Intervertebral disc degeneration [Unknown]
  - Lung opacity [Unknown]
  - Lung consolidation [Unknown]

NARRATIVE: CASE EVENT DATE: 20230920
